FAERS Safety Report 16287362 (Version 1)
Quarter: 2019Q2

REPORT INFORMATION
  Report Type: Spontaneous
  Country: US (occurrence: US)
  Receive Date: 20190508
  Receipt Date: 20190508
  Transmission Date: 20190711
  Serious: Yes (Hospitalization)
  Sender: FDA-Public Use
  Company Number: US-MYLANLABS-2019M1043247

PATIENT
  Age: 42 Year
  Sex: Male

DRUGS (7)
  1. NOREPINEPHRINE. [Suspect]
     Active Substance: NOREPINEPHRINE
     Indication: BLOOD PRESSURE ABNORMAL
     Route: 065
  2. CABERGOLINE. [Concomitant]
     Active Substance: CABERGOLINE
     Indication: PROLACTIN-PRODUCING PITUITARY TUMOUR
     Route: 065
  3. DOBUTAMINE [Suspect]
     Active Substance: DOBUTAMINE\DOBUTAMINE HYDROCHLORIDE
     Indication: BLOOD PRESSURE ABNORMAL
     Route: 065
  4. VASOPRESSIN. [Suspect]
     Active Substance: VASOPRESSIN
     Indication: BLOOD PRESSURE ABNORMAL
     Route: 065
  5. METHYLPREDNISOLONE. [Suspect]
     Active Substance: METHYLPREDNISOLONE
     Indication: BLOOD PRESSURE ABNORMAL
     Dosage: MULTIPLE DOSES
     Route: 042
  6. MEROPENEM. [Suspect]
     Active Substance: MEROPENEM
     Indication: ESCHERICHIA BACTERAEMIA
     Route: 065
  7. PHENYLEPHRINE [Suspect]
     Active Substance: PHENYLEPHRINE\PHENYLEPHRINE HYDROCHLORIDE
     Indication: BLOOD PRESSURE ABNORMAL
     Route: 065

REACTIONS (4)
  - Mucormycosis [Recovering/Resolving]
  - Haematemesis [Recovering/Resolving]
  - Gastric ulcer [Recovering/Resolving]
  - Anaemia [Recovering/Resolving]
